FAERS Safety Report 7465379-5 (Version None)
Quarter: 2011Q2

REPORT INFORMATION
  Report Type: 
  Country: None (occurrence: None)
  Receive Date: 20110504
  Receipt Date: 20110504
  Transmission Date: 20111010
  Serious: Yes (Other)
  Sender: FDA-Public Use
  Company Number: None

PATIENT
  Age: 69 Year
  Sex: Female
  Weight: 116.1208 kg

DRUGS (1)
  1. DILTIAZEM [Suspect]
     Indication: ATRIAL FIBRILLATION
     Dosage: 180 MG  ONCE DAILY PO
     Route: 048
     Dates: start: 20110411, end: 20110503

REACTIONS (3)
  - RHINORRHOEA [None]
  - PRURITUS [None]
  - RASH MACULO-PAPULAR [None]
